FAERS Safety Report 22259688 (Version 2)
Quarter: 2023Q2

REPORT INFORMATION
  Report Type: Other
  Country: CN (occurrence: None)
  Receive Date: 20230427
  Receipt Date: 20230522
  Transmission Date: 20230722
  Serious: Yes (Death)
  Sender: FDA-Public Use
  Company Number: CN-ROCHE-3337388

PATIENT
  Age: 63 Year
  Sex: Male

DRUGS (7)
  1. RITUXIMAB [Suspect]
     Active Substance: RITUXIMAB
     Indication: Enteropathy-associated T-cell lymphoma
     Route: 065
  2. CYCLOPHOSPHAMIDE [Suspect]
     Active Substance: CYCLOPHOSPHAMIDE
     Indication: Enteropathy-associated T-cell lymphoma
     Route: 065
  3. ADRIAMYCIN [Suspect]
     Active Substance: DOXORUBICIN HYDROCHLORIDE
     Indication: Enteropathy-associated T-cell lymphoma
     Route: 065
  4. VINCRISTINE [Suspect]
     Active Substance: VINCRISTINE
     Indication: Enteropathy-associated T-cell lymphoma
     Route: 065
  5. PREDNISONE [Suspect]
     Active Substance: PREDNISONE
     Indication: Enteropathy-associated T-cell lymphoma
     Route: 065
  6. ETOPOSIDE [Concomitant]
     Active Substance: ETOPOSIDE
  7. DOXORUBICIN [Concomitant]
     Active Substance: DOXORUBICIN

REACTIONS (2)
  - Disease progression [Fatal]
  - Drug ineffective [Unknown]
